FAERS Safety Report 8182144-4 (Version None)
Quarter: 2012Q1

REPORT INFORMATION
  Report Type: 
  Country: None (occurrence: None)
  Receive Date: 20120302
  Receipt Date: 20120220
  Transmission Date: 20120608
  Serious: Yes (Hospitalization, Other)
  Sender: FDA-Public Use
  Company Number: CA-ELI_LILLY_AND_COMPANY-CA201202006017

PATIENT
  Age: 10 Year
  Sex: Male
  Weight: 44 kg

DRUGS (8)
  1. ZIPRASIDONE HYDROCHLORIDE [Concomitant]
  2. FENTANYL [Concomitant]
  3. METHYLPHENIDATE [Concomitant]
  4. FLUVOXAMINE MALEATE [Concomitant]
  5. PROPOFOL [Concomitant]
  6. DIVALPROEX SODIUM [Concomitant]
  7. OLANZAPINE [Suspect]
  8. MORPHINE [Concomitant]

REACTIONS (2)
  - OFF LABEL USE [None]
  - AGITATION [None]
